FAERS Safety Report 9738790 (Version 1)
Quarter: 2013Q4

REPORT INFORMATION
  Report Type: Spontaneous
  Country: US (occurrence: US)
  Receive Date: 20131209
  Receipt Date: 20131209
  Transmission Date: 20140711
  Serious: Yes (Hospitalization)
  Sender: FDA-Public Use
  Company Number: US-BAYER-2013-147479

PATIENT
  Age: 40 Year
  Sex: Female
  Weight: 131.52 kg

DRUGS (9)
  1. BEYAZ [Suspect]
  2. PRENATAL VITAMINS [Concomitant]
  3. FERROUS SULFATE [Concomitant]
  4. MAXZIDE [Concomitant]
     Indication: SWELLING
     Dosage: 37.5/25 MG
  5. MAXZIDE [Concomitant]
     Indication: VENOUS INSUFFICIENCY
  6. FLEXERIL [Concomitant]
     Indication: BACK PAIN
     Dosage: 10 MG, UNK
  7. LORTAB [Concomitant]
     Indication: BACK PAIN
     Dosage: 5/500 MG
  8. VALTREX [Concomitant]
     Indication: ORAL HERPES
  9. CYMBALTA [Concomitant]
     Dosage: 60 MG, UNK

REACTIONS (2)
  - Pulmonary embolism [None]
  - Deep vein thrombosis [None]
